FAERS Safety Report 12875083 (Version 1)
Quarter: 2016Q4

REPORT INFORMATION
  Report Type: Report from Study
  Country: BR (occurrence: BR)
  Receive Date: 20161023
  Receipt Date: 20161023
  Transmission Date: 20170207
  Serious: Yes (Other)
  Sender: FDA-Public Use
  Company Number: BR-UCBSA-2016040317

PATIENT
  Age: 53 Year
  Sex: Female
  Weight: 82 kg

DRUGS (7)
  1. MORPHINE [Concomitant]
     Active Substance: MORPHINE
     Indication: PAIN
     Dosage: 2 DF, ONCE DAILY (QD) (2 TABLETS DAILY)
     Route: 048
     Dates: start: 20160204
  2. AMITRIPTYLINE [Concomitant]
     Active Substance: AMITRIPTYLINE
     Indication: ANTIDEPRESSANT THERAPY
     Dosage: 1 DF, ONCE DAILY (QD) (1 TABLET AT NIGHT)
     Route: 048
     Dates: start: 20160204
  3. CERTOLIZUMAB PEGOL [Suspect]
     Active Substance: CERTOLIZUMAB PEGOL
     Indication: RHEUMATOID ARTHRITIS
     Dosage: 200 MG, EV 15 DAYS
     Dates: start: 20160802
  4. OMEPRAZOLE. [Concomitant]
     Active Substance: OMEPRAZOLE
     Indication: ABDOMINAL PAIN UPPER
     Dosage: 1 DF, ONCE DAILY (QD) (1 TABLET AT MORNING)
     Route: 048
     Dates: start: 20160204
  5. PREGABALIN. [Concomitant]
     Active Substance: PREGABALIN
     Indication: PAIN
     Dosage: 3 DF, ONCE DAILY (QD) (3 TABLETS DAILY)
     Route: 048
     Dates: start: 20160204
  6. CERTOLIZUMAB PEGOL [Suspect]
     Active Substance: CERTOLIZUMAB PEGOL
     Indication: OFF LABEL USE
  7. LETROZOL [Concomitant]
     Active Substance: LETROZOLE
     Indication: BREAST MASS
     Dosage: 1 DF, ONCE DAILY (QD) ( 1 TABLET AT MORNING)
     Route: 048
     Dates: start: 201503

REACTIONS (3)
  - Breast mass [Not Recovered/Not Resolved]
  - Off label use [Unknown]
  - Oropharyngeal pain [Recovering/Resolving]

NARRATIVE: CASE EVENT DATE: 20160802
